FAERS Safety Report 8799702 (Version 1)
Quarter: 2012Q4

REPORT INFORMATION
  Report Type: Spontaneous
  Country: AU (occurrence: None)
  Receive Date: 20120914
  Receipt Date: 20120914
  Transmission Date: 20130627
  Serious: Yes (Hospitalization, Other)
  Sender: FDA-Public Use
  Company Number: NSR_00660_2012

PATIENT
  Age: 50 Year
  Sex: Female

DRUGS (1)
  1. VENLAFAXINE [Suspect]

REACTIONS (1)
  - Stress cardiomyopathy [None]
